FAERS Safety Report 23919451 (Version 1)
Quarter: 2024Q2

REPORT INFORMATION
  Report Type: Spontaneous
  Country: US (occurrence: None)
  Receive Date: 20240529
  Receipt Date: 20240529
  Transmission Date: 20240715
  Serious: Yes (Other)
  Sender: FDA-Public Use
  Company Number: None

PATIENT
  Sex: Female

DRUGS (3)
  1. HUMIRA [Suspect]
     Active Substance: ADALIMUMAB
     Indication: Rheumatoid arthritis
     Route: 058
     Dates: start: 20240504
  2. ENBREL SURECLICK [Concomitant]
  3. GLIPIZIDE [Concomitant]

REACTIONS (4)
  - Pollakiuria [None]
  - Weight increased [None]
  - Suicidal ideation [None]
  - Therapy change [None]
